FAERS Safety Report 9405412 (Version 3)
Quarter: 2013Q4

REPORT INFORMATION
  Report Type: Spontaneous
  Country: JP (occurrence: JP)
  Receive Date: 20130715
  Receipt Date: 20131021
  Transmission Date: 20140711
  Serious: Yes (Life-Threatening)
  Sender: FDA-Public Use
  Company Number: SYM-2013-05530

PATIENT
  Age: 26 Year
  Sex: Female

DRUGS (1)
  1. HERBESSER [Suspect]
     Indication: SUICIDE ATTEMPT
     Route: 048
     Dates: start: 20130629, end: 20130629

REACTIONS (5)
  - Blood pressure decreased [None]
  - Incorrect dose administered [None]
  - Overdose [None]
  - Self-medication [None]
  - Circulatory collapse [None]
